FAERS Safety Report 6806130-9 (Version None)
Quarter: 2010Q2

REPORT INFORMATION
  Report Type: 
  Country: None (occurrence: None)
  Receive Date: 20100629
  Receipt Date: 20080218
  Transmission Date: 20101027
  Serious: No
  Sender: FDA-Public Use
  Company Number: US-PFIZER INC-2007106209

PATIENT
  Sex: Female
  Weight: 102.27 kg

DRUGS (5)
  1. XANAX [Suspect]
     Indication: ANXIETY DISORDER
  2. TRIAMTERENE AND HYDROCHLOROTHIAZIDE [Concomitant]
  3. ALL OTHER THERAPEUTIC PRODUCTS [Concomitant]
  4. CALCIUM CARBONATE [Concomitant]
  5. ASACOL [Concomitant]
     Indication: COLITIS

REACTIONS (4)
  - INSOMNIA [None]
  - PANIC ATTACK [None]
  - PRURITUS [None]
  - UNEVALUABLE EVENT [None]
